FAERS Safety Report 5764133-X (Version None)
Quarter: 2008Q2

REPORT INFORMATION
  Report Type: 
  Country: None (occurrence: None)
  Receive Date: 20080609
  Receipt Date: 20080327
  Transmission Date: 20081010
  Serious: No
  Sender: FDA-Public Use
  Company Number: 002#2#2008-00163

PATIENT
  Age: 70 Year
  Sex: Male
  Weight: 74.8435 kg

DRUGS (9)
  1. NEUPRO [Suspect]
     Indication: PARKINSON'S DISEASE
     Dosage: 2MG/24H, 1 IN 1 D, TRANSDERMAL
     Route: 062
     Dates: start: 20080115, end: 20080121
  2. TAMBOCOR [Concomitant]
  3. PROAMATINE [Concomitant]
  4. FLORINEF [Concomitant]
  5. TAPAZOLE [Concomitant]
  6. VITAMIN B-12 [Concomitant]
  7. ASPIRIN [Concomitant]
  8. KLONOPIN [Concomitant]
  9. STOOL SOFTENER [Concomitant]

REACTIONS (1)
  - DRUG INEFFECTIVE [None]
